FAERS Safety Report 26062465 (Version 2)
Quarter: 2025Q4

REPORT INFORMATION
  Report Type: Spontaneous
  Country: GB (occurrence: GB)
  Receive Date: 20251119
  Receipt Date: 20251204
  Transmission Date: 20260117
  Serious: Yes (Hospitalization, Disabling, Other)
  Sender: SANDOZ
  Company Number: None

PATIENT
  Age: 10 Month
  Sex: Female

DRUGS (5)
  1. OMEPRAZOLE [Suspect]
     Active Substance: OMEPRAZOLE
     Indication: Adverse drug reaction
     Dosage: UNK
     Route: 065
     Dates: end: 20250501
  2. CEFTRIAXONE [Concomitant]
     Active Substance: CEFTRIAXONE
     Indication: Sepsis
     Dosage: UNK
     Route: 065
  3. DIPHTHERIA AND TETANUS TOXOIDS AND PERTUSSIS VACCINE ADSORBED AND HAEM [Concomitant]
     Active Substance: DIPHTHERIA AND TETANUS TOXOIDS AND PERTUSSIS VACCINE ADSORBED AND HAEMOPHILUS B CONJUGATE VACCINE
     Indication: Product used for unknown indication
     Dosage: UNK
     Route: 065
  4. IBUPROFEN [Concomitant]
     Active Substance: IBUPROFEN
     Indication: Product used for unknown indication
     Dosage: UNK
     Route: 065
  5. ACETAMINOPHEN [Concomitant]
     Active Substance: ACETAMINOPHEN
     Indication: Product used for unknown indication
     Dosage: UNK
     Route: 065

REACTIONS (4)
  - Hip fracture [Recovered/Resolved]
  - Rib fracture [Recovered/Resolved]
  - Medication error [Unknown]
  - Off label use [Unknown]

NARRATIVE: CASE EVENT DATE: 20250406
